FAERS Safety Report 9289301 (Version 2)
Quarter: 2013Q2

REPORT INFORMATION
  Report Type: Spontaneous
  Country: GB (occurrence: None)
  Receive Date: 20130510
  Receipt Date: 20130516
  Transmission Date: 20140414
  Serious: Yes (Other)
  Sender: FDA-Public Use
  Company Number: AUR-APL-2013-03884

PATIENT
  Age: 58 Year
  Sex: Female
  Weight: 69 kg

DRUGS (10)
  1. LAMOTRIGINE [Suspect]
     Indication: EPILEPSY
     Dosage: 200 MG (100 MG, 2 IN 1 D), ORAL
     Dates: start: 20060620, end: 20130228
  2. AVENO (AVENA SATIVA FLUID EXTRACT) [Concomitant]
  3. CALCIUM W/VIT.D3 (CALCIUM D3) [Concomitant]
  4. EPILIM CHRONO (VALPROATE SODIUM) [Concomitant]
  5. FOLIC ACID (FOLIC ACID) [Concomitant]
  6. HALOPERIDOL (HALOPERIDOL) (HALOPERIDOL) [Concomitant]
  7. LOTRIDERM (BETAMETHASONE DIPROPIONATE) [Concomitant]
  8. PROCYCLIDINE (PROCYCLIDINE) [Concomitant]
  9. SENNA (SENNA ALEXANDRINA) [Concomitant]
  10. TRIFLUOPERAZINE TRIFLUOPERAZINE) [Concomitant]

REACTIONS (4)
  - Purpura [None]
  - Skin ulcer [None]
  - Vasculitic rash [None]
  - Discomfort [None]
